FAERS Safety Report 19483197 (Version 2)
Quarter: 2021Q3

REPORT INFORMATION
  Report Type: Spontaneous
  Country: FR (occurrence: FR)
  Receive Date: 20210701
  Receipt Date: 20210817
  Transmission Date: 20211014
  Serious: Yes (Hospitalization, Other)
  Sender: FDA-Public Use
  Company Number: FR-TEVA-2021-FR-1927411

PATIENT
  Age: 25 Year
  Sex: Female

DRUGS (2)
  1. TRAMADOL. [Suspect]
     Active Substance: TRAMADOL
     Indication: PROCEDURAL PAIN
     Dosage: 1000?1500 MG
     Route: 065
  2. CODEINE [Suspect]
     Active Substance: CODEINE
     Indication: PRODUCT USED FOR UNKNOWN INDICATION
     Route: 065

REACTIONS (7)
  - Maternal exposure during pregnancy [Unknown]
  - Live birth [Unknown]
  - Intentional overdose [Recovering/Resolving]
  - Drug dependence [Recovering/Resolving]
  - Drug abuse [Recovering/Resolving]
  - Epilepsy [Recovering/Resolving]
  - Withdrawal syndrome [Recovering/Resolving]
